FAERS Safety Report 10562945 (Version 1)
Quarter: 2014Q4

REPORT INFORMATION
  Report Type: Spontaneous
  Country: US (occurrence: None)
  Receive Date: 20141103
  Receipt Date: 20141103
  Transmission Date: 20150529
  Serious: Yes (Disabling)
  Sender: FDA-Public Use
  Company Number: None

PATIENT
  Age: 34 Year
  Sex: Female
  Weight: 60.78 kg

DRUGS (1)
  1. NITROFURANTOIN. [Suspect]
     Active Substance: NITROFURANTOIN
     Indication: URINARY TRACT INFECTION
     Dosage: 1 PILL
     Route: 048
     Dates: start: 20140908, end: 20140910

REACTIONS (5)
  - Pyrexia [None]
  - Hypersensitivity [None]
  - Hypoaesthesia [None]
  - Neuropathy peripheral [None]
  - Chills [None]

NARRATIVE: CASE EVENT DATE: 20140830
